FAERS Safety Report 18112923 (Version 1)
Quarter: 2020Q3

REPORT INFORMATION
  Report Type: Spontaneous
  Country: US (occurrence: US)
  Receive Date: 20200805
  Receipt Date: 20200805
  Transmission Date: 20201103
  Serious: Yes (Hospitalization)
  Sender: FDA-Public Use
  Company Number: None

PATIENT
  Age: 37 Year
  Sex: Male
  Weight: 103.7 kg

DRUGS (1)
  1. BLINCYTO [Suspect]
     Active Substance: BLINATUMOMAB
     Indication: B-CELL TYPE ACUTE LEUKAEMIA
     Route: 041
     Dates: start: 20200714, end: 20200716

REACTIONS (5)
  - Transaminases increased [None]
  - Aspartate aminotransferase increased [None]
  - Liver function test increased [None]
  - Alanine aminotransferase increased [None]
  - Infusion related reaction [None]

NARRATIVE: CASE EVENT DATE: 20200716
